FAERS Safety Report 10191344 (Version 1)
Quarter: 2014Q2

REPORT INFORMATION
  Report Type: Spontaneous
  Country: US (occurrence: None)
  Receive Date: 20140522
  Receipt Date: 20140522
  Transmission Date: 20141212
  Serious: Yes (Hospitalization)
  Sender: FDA-Public Use
  Company Number: None

PATIENT
  Age: 70 Year
  Sex: Female
  Weight: 103 kg

DRUGS (1)
  1. FOSAMAX (ALENDRONATE) 70MG TEVA [Suspect]
     Indication: OSTEOPOROSIS
     Route: 048
     Dates: start: 20140519, end: 20140519

REACTIONS (1)
  - Muscular weakness [None]
